FAERS Safety Report 4303244-2 (Version None)
Quarter: 2004Q1

REPORT INFORMATION
  Report Type: 
  Country: None (occurrence: None)
  Receive Date: 20040223
  Receipt Date: 20040212
  Transmission Date: 20041129
  Serious: Yes (Hospitalization)
  Sender: FDA-Public Use
  Company Number: 87-08-044

PATIENT
  Age: 65 Year
  Sex: Male

DRUGS (2)
  1. INTRON A [Suspect]
     Indication: HAIRY CELL LEUKAEMIA
     Dosage: 5 MU/M^2 QD SUBCUTANEOUS
     Route: 058
     Dates: start: 19870112, end: 19870515
  2. MINOCYCLINE HCL [Concomitant]

REACTIONS (3)
  - EYE PAIN [None]
  - IIIRD NERVE PARALYSIS [None]
  - LEUKAEMIA RECURRENT [None]
